FAERS Safety Report 5155041-6 (Version None)
Quarter: 2006Q4

REPORT INFORMATION
  Report Type: 
  Country: None (occurrence: None)
  Receive Date: 20061121
  Receipt Date: 20060811
  Transmission Date: 20070319
  Serious: Yes (Hospitalization)
  Sender: FDA-Public Use
  Company Number: JP-ELI_LILLY_AND_COMPANY-JP200608004031

PATIENT
  Age: 79 Year
  Sex: Female
  Weight: 50.8 kg

DRUGS (4)
  1. TAGAMET [Concomitant]
     Indication: PROPHYLAXIS
     Dosage: 400 MG, 2/D
     Route: 048
     Dates: start: 20060808
  2. MYSLEE [Concomitant]
     Indication: INSOMNIA
     Dosage: 10 MG, DAILY (1/D)
     Route: 048
     Dates: start: 20060806, end: 20060819
  3. GEMZAR [Suspect]
     Indication: BILE DUCT CANCER STAGE IV
     Dosage: 1000 MG, OTHER
     Route: 042
     Dates: start: 20060830, end: 20060830
  4. GEMZAR [Suspect]
     Dosage: 1000 MG/M2, UNK
     Route: 042
     Dates: start: 20060809, end: 20060809

REACTIONS (3)
  - CHONDROCALCINOSIS PYROPHOSPHATE [None]
  - CONSTIPATION [None]
  - PYREXIA [None]
